FAERS Safety Report 12325601 (Version 1)
Quarter: 2016Q2

REPORT INFORMATION
  Report Type: Spontaneous
  Country: US (occurrence: US)
  Receive Date: 20160503
  Receipt Date: 20160503
  Transmission Date: 20160815
  Serious: No
  Sender: FDA-Public Use
  Company Number: US-009507513-1605USA000744

PATIENT
  Age: 61 Year
  Sex: Male

DRUGS (2)
  1. HEXADROL [Suspect]
     Active Substance: DEXAMETHASONE
     Route: 048
  2. MELPHALAN [Suspect]
     Active Substance: MELPHALAN

REACTIONS (1)
  - Drug ineffective [Unknown]
